FAERS Safety Report 9531973 (Version 2)
Quarter: 2013Q3

REPORT INFORMATION
  Report Type: Report from Study
  Country: JP (occurrence: JP)
  Receive Date: 20130918
  Receipt Date: 20130918
  Transmission Date: 20140515
  Serious: Yes (Other)
  Sender: FDA-Public Use
  Company Number: JP-TAKEDA-TCI2013A01672

PATIENT
  Age: 81 Year
  Sex: Male
  Weight: 46 kg

DRUGS (25)
  1. PIOGLITAZONE [Suspect]
     Indication: TYPE 2 DIABETES MELLITUS
     Dosage: 15 MG, UNK
     Route: 048
     Dates: start: 20110608, end: 20120522
  2. HUMALOG MIX [Concomitant]
     Indication: TYPE 2 DIABETES MELLITUS
     Route: 042
     Dates: start: 20061227
  3. SEIBULE [Concomitant]
     Indication: TYPE 2 DIABETES MELLITUS
     Route: 048
     Dates: start: 20061211, end: 20130116
  4. KINEDAK [Concomitant]
     Route: 048
     Dates: start: 20061118, end: 20130116
  5. FOIPAN [Concomitant]
     Route: 048
  6. FOIPAN [Concomitant]
     Route: 048
  7. TSUMURA GOSHAJINKIGAN [Concomitant]
     Route: 048
  8. TSUMURA GOSHAJINKIGAN [Concomitant]
     Route: 048
  9. TSUMURA GOSHAJINKIGAN [Concomitant]
     Route: 048
  10. LYRICA [Concomitant]
     Route: 048
  11. LYRICA [Concomitant]
     Route: 048
  12. LASIX [Concomitant]
     Route: 048
  13. LASIX [Concomitant]
     Route: 048
  14. LASIX [Concomitant]
     Route: 048
  15. DIOVAN [Concomitant]
     Route: 048
  16. DIOVAN [Concomitant]
     Route: 048
  17. HARNAL D [Concomitant]
     Route: 048
  18. HARNAL D [Concomitant]
     Route: 048
  19. AVOLVE [Concomitant]
     Route: 048
  20. AVOLVE [Concomitant]
     Route: 048
  21. FLIVAS [Concomitant]
     Route: 048
  22. FLIVAS [Concomitant]
     Route: 048
  23. KREMEZIN [Concomitant]
     Route: 048
  24. KREMEZIN [Concomitant]
     Route: 048
  25. KREMEZIN [Concomitant]
     Route: 048

REACTIONS (7)
  - Renal impairment [Not Recovered/Not Resolved]
  - Humerus fracture [Recovered/Resolved]
  - Fall [Recovered/Resolved]
  - Humerus fracture [Recovered/Resolved]
  - Fall [Recovered/Resolved]
  - Thermal burn [Recovered/Resolved]
  - Fall [Recovered/Resolved]
